FAERS Safety Report 7718292-X (Version None)
Quarter: 2011Q3

REPORT INFORMATION
  Report Type: 
  Country: None (occurrence: None)
  Receive Date: 20110830
  Receipt Date: 20110825
  Transmission Date: 20111222
  Serious: Yes (Death, Other)
  Sender: FDA-Public Use
  Company Number: PHHY2011JP65335

PATIENT
  Age: 16 Year
  Sex: Male

DRUGS (3)
  1. AMBISOME [Concomitant]
     Dosage: UNK UKN, UNK
  2. NEORAL [Suspect]
     Indication: BONE MARROW TRANSPLANT
     Dosage: 150 MG, UNK
     Route: 048
  3. STEROIDS NOS [Concomitant]
     Dosage: UNK UKN, UNK

REACTIONS (6)
  - PYREXIA [None]
  - GRAFT VERSUS HOST DISEASE [None]
  - RESPIRATORY FAILURE [None]
  - SERUM FERRITIN INCREASED [None]
  - LUNG INFECTION [None]
  - FUNGAL INFECTION [None]
